FAERS Safety Report 9437027 (Version 1)
Quarter: 2013Q3

REPORT INFORMATION
  Report Type: Spontaneous
  Country: AU (occurrence: AU)
  Receive Date: 20130802
  Receipt Date: 20130802
  Transmission Date: 20140515
  Serious: Yes (Other)
  Sender: FDA-Public Use
  Company Number: AU-PFIZER INC-2013224079

PATIENT
  Sex: Female

DRUGS (2)
  1. LYRICA [Suspect]
     Indication: EPILEPSY
     Dosage: 450 MG, AT NIGHT
  2. LYRICA [Suspect]
     Indication: RESTLESS LEGS SYNDROME

REACTIONS (4)
  - Off label use [Unknown]
  - Convulsion [Unknown]
  - Amnesia [Unknown]
  - Speech disorder [Unknown]
